FAERS Safety Report 8339807-7 (Version None)
Quarter: 2012Q2

REPORT INFORMATION
  Report Type: 
  Country: None (occurrence: None)
  Receive Date: 20120507
  Receipt Date: 20120430
  Transmission Date: 20120825
  Serious: Yes (Other)
  Sender: FDA-Public Use
  Company Number: US-BAYER-2011-120729

PATIENT
  Age: 38 Year
  Sex: Female

DRUGS (10)
  1. INDERAL LA [Concomitant]
     Dosage: 80 MG, UNK
     Route: 048
     Dates: start: 20060510
  2. AMOXICILLIN [Concomitant]
     Dosage: 500 MG, UNK
     Route: 048
     Dates: start: 20060411
  3. PROPOXYPHENE NAPSYLATE W/ ACETAMINOPHEN [Concomitant]
     Dosage: 100 MG, UNK
     Route: 048
     Dates: start: 20060411
  4. SANCTURA [Concomitant]
     Indication: HYPERTONIC BLADDER
  5. OVCON-35 [Concomitant]
     Indication: METRORRHAGIA
     Dosage: UNK
     Dates: start: 20050208
  6. LUPRON [Concomitant]
     Indication: UTERINE LEIOMYOMA
     Dosage: UNK
     Dates: start: 20060419
  7. INDERAL LA [Concomitant]
     Indication: MIGRAINE
     Dosage: 80 MG, UNK
     Route: 048
     Dates: start: 20060407
  8. IRON SUPPLEMENT [Concomitant]
  9. YASMIN [Suspect]
  10. TYLENOL (CAPLET) [Concomitant]
     Indication: HEADACHE

REACTIONS (5)
  - DEEP VEIN THROMBOSIS [None]
  - EMOTIONAL DISORDER [None]
  - PAIN [None]
  - ANXIETY [None]
  - INJURY [None]
